FAERS Safety Report 7222372-5 (Version None)
Quarter: 2011Q1

REPORT INFORMATION
  Report Type: 
  Country: None (occurrence: None)
  Receive Date: 20110112
  Receipt Date: 20110105
  Transmission Date: 20110831
  Serious: Yes (Other)
  Sender: FDA-Public Use
  Company Number: US-ABBOTT-10P-163-0667518-00

PATIENT
  Age: 18 Year
  Sex: Female

DRUGS (3)
  1. LAMIVUDINE + ZIDOVUDINE [Suspect]
     Dosage: 600/300 MG/DAY, 2 TAB/CAPS DAILY
     Dates: start: 20050101
  2. LAMIVUDINE + ZIDOVUDINE [Suspect]
     Indication: PRODUCT USED FOR UNKNOWN INDICATION
     Dosage: 600/
  3. KALETRA [Suspect]
     Indication: PRODUCT USED FOR UNKNOWN INDICATION
     Dosage: 800/200 MG/DAY, 4 TAB/CAPS DAILY
     Route: 048
     Dates: start: 20050101

REACTIONS (1)
  - ABORTION INDUCED [None]
